FAERS Safety Report 16126841 (Version 2)
Quarter: 2020Q1

REPORT INFORMATION
  Report Type: Spontaneous
  Country: GB (occurrence: GB)
  Receive Date: 20190328
  Receipt Date: 20200312
  Transmission Date: 20200409
  Serious: Yes (Other)
  Sender: FDA-Public Use
  Company Number: GB-AXELLIA-002335

PATIENT
  Age: 48 Year
  Sex: Female

DRUGS (10)
  1. CHLORPHENAMINE/CHLORPHENAMINE MALEATE/CHLORPHENAMINE RESINATE/CHLORPHENAMINE TANNATE [Concomitant]
     Active Substance: CHLORPHENIRAMINE
     Dosage: AS NEEDED
  2. VANCOMYCIN [Suspect]
     Active Substance: VANCOMYCIN
     Indication: PRODUCT USED FOR UNKNOWN INDICATION
     Route: 042
     Dates: end: 20190212
  3. CALCICHEW [Concomitant]
     Active Substance: CALCIUM CARBONATE
  4. OXYCODONE/OXYCODONE HYDROCHLORIDE/OXYCODONE PECTINATE/OXYCODONE TEREPHTHALATE [Concomitant]
     Active Substance: OXYCODONE
  5. RIVAROXABAN [Concomitant]
     Active Substance: RIVAROXABAN
  6. LACTULOSE. [Concomitant]
     Active Substance: LACTULOSE
  7. PREGABALIN. [Suspect]
     Active Substance: PREGABALIN
     Indication: PRODUCT USED FOR UNKNOWN INDICATION
     Route: 048
     Dates: start: 20190131, end: 20190212
  8. NAPROXEN. [Concomitant]
     Active Substance: NAPROXEN
  9. MEROPENEM/MEROPENEM TRIHYDRATE [Concomitant]
     Active Substance: MEROPENEM
  10. QUININE [Concomitant]
     Active Substance: QUININE
     Dosage: AT NIGHT

REACTIONS (2)
  - Hepatic enzyme increased [Recovered/Resolved]
  - Thrombocytopenia [Recovered/Resolved]
